FAERS Safety Report 18288839 (Version 1)
Quarter: 2020Q3

REPORT INFORMATION
  Report Type: Other
  Country: US (occurrence: US)
  Receive Date: 20200921
  Receipt Date: 20200921
  Transmission Date: 20201103
  Serious: Yes (Other)
  Sender: FDA-Public Use
  Company Number: US-ROCHE-2677781

PATIENT
  Sex: Male

DRUGS (1)
  1. RITUXAN [Suspect]
     Active Substance: RITUXIMAB
     Indication: DIFFUSE LARGE B-CELL LYMPHOMA
     Dosage: INFUSE 680 MG INTRAVENOUSLY EVERY 21 DAY(S) VIAL
     Route: 042

REACTIONS (3)
  - Peripheral swelling [Unknown]
  - Malignant neoplasm progression [Unknown]
  - Swelling [Unknown]
